FAERS Safety Report 14391755 (Version 3)
Quarter: 2018Q3

REPORT INFORMATION
  Report Type: Report from Study
  Country: DE (occurrence: DE)
  Receive Date: 20180116
  Receipt Date: 20180906
  Transmission Date: 20181010
  Serious: Yes (Death, Hospitalization, Other)
  Sender: FDA-Public Use
  Company Number: DE-PFIZER INC-2018015571

PATIENT
  Age: 51 Year
  Sex: Female
  Weight: 110 kg

DRUGS (4)
  1. AFINITOR [Suspect]
     Active Substance: EVEROLIMUS
     Indication: BREAST CANCER METASTATIC
     Dosage: 10 MG, QD
     Route: 048
     Dates: start: 20140731, end: 20140916
  2. PAMIDRONATE [Concomitant]
     Active Substance: PAMIDRONATE DISODIUM
     Dosage: 1 DF, MONTHLY (QMO)
     Route: 065
     Dates: start: 201404
  3. EXEMESTANE. [Suspect]
     Active Substance: EXEMESTANE
     Indication: BREAST CANCER METASTATIC
     Dosage: 25 MG, QD
     Route: 048
     Dates: start: 20140606, end: 20141123
  4. AFINITOR [Suspect]
     Active Substance: EVEROLIMUS
     Dosage: 10 MG, QD
     Route: 048
     Dates: start: 20140606, end: 20140716

REACTIONS (10)
  - Thoracic vertebral fracture [Fatal]
  - Platelet count decreased [Unknown]
  - Paresis [Fatal]
  - Myelitis transverse [Fatal]
  - Weight decreased [Fatal]
  - Spinal column stenosis [Unknown]
  - Renal failure [Fatal]
  - Lumbar vertebral fracture [Fatal]
  - Hepatic failure [Fatal]
  - Neoplasm progression [Fatal]

NARRATIVE: CASE EVENT DATE: 201409
